FAERS Safety Report 19160553 (Version 1)
Quarter: 2021Q2

REPORT INFORMATION
  Report Type: Spontaneous
  Country: US (occurrence: US)
  Receive Date: 20210420
  Receipt Date: 20210420
  Transmission Date: 20210717
  Serious: Yes (Hospitalization)
  Sender: FDA-Public Use
  Company Number: US-HORIZON THERAPEUTICS-HZN-2021-001701

PATIENT

DRUGS (1)
  1. PROCYSBI [Suspect]
     Active Substance: CYSTEAMINE BITARTRATE
     Indication: CYSTINOSIS
     Dosage: 75 MG, BID, TAKE 525 MG (SEVEN 75 MG CAPSULES) TWO TIMES A DAY. TOTAL DAILY DOSE IS 1050 MG
     Route: 048

REACTIONS (1)
  - Blood potassium decreased [Unknown]
